FAERS Safety Report 9789685 (Version 1)
Quarter: 2013Q4

REPORT INFORMATION
  Report Type: Spontaneous
  Country: US (occurrence: None)
  Receive Date: 20131227
  Receipt Date: 20131227
  Transmission Date: 20140711
  Serious: Yes (Death)
  Sender: FDA-Public Use
  Company Number: ADR-2013-02328

PATIENT
  Age: 62 Year
  Sex: Male

DRUGS (3)
  1. BACLOFEN [Suspect]
     Indication: CANCER PAIN
  2. DILAUDID [Suspect]
  3. BUPIVACAINE [Suspect]

REACTIONS (2)
  - Myelodysplastic syndrome [None]
  - Condition aggravated [None]
